APPROVED DRUG PRODUCT: CHILDREN'S MOTRIN
Active Ingredient: IBUPROFEN
Strength: 40MG/ML
Dosage Form/Route: SUSPENSION/DROPS;ORAL
Application: N020603 | Product #001
Applicant: KENVUE BRANDS LLC
Approved: Jun 10, 1996 | RLD: Yes | RS: Yes | Type: OTC